FAERS Safety Report 5071313-8 (Version None)
Quarter: 2006Q3

REPORT INFORMATION
  Report Type: 
  Country: None (occurrence: None)
  Receive Date: 20060804
  Receipt Date: 20050927
  Transmission Date: 20061208
  Serious: No
  Sender: FDA-Public Use
  Company Number: US-AMGEN-US152177

PATIENT
  Sex: Male
  Weight: 73 kg

DRUGS (11)
  1. ARANESP [Suspect]
     Indication: DIALYSIS
     Route: 042
     Dates: start: 20050614, end: 20050927
  2. SENSIPAR [Concomitant]
     Route: 048
     Dates: start: 20050614
  3. ASPIRIN [Concomitant]
     Dates: start: 20040916
  4. AMLODIPINE [Concomitant]
     Dates: start: 20031224
  5. CALCIUM CARBONATE [Concomitant]
  6. DOXERCALCIFEROL [Concomitant]
     Dates: start: 20050719
  7. GLYBURIDE [Concomitant]
     Dates: start: 20041227
  8. NEPHRO-VITE [Concomitant]
     Dates: start: 20050428
  9. ISOSORBIDE MONONITRATE [Concomitant]
     Dates: start: 20041224
  10. SEVELAMER HCL [Concomitant]
     Dates: start: 20050412
  11. WARFARIN SODIUM [Concomitant]
     Dates: start: 20041113

REACTIONS (2)
  - PORPHYRIA [None]
  - SKIN LESION [None]
